FAERS Safety Report 23171206 (Version 7)
Quarter: 2024Q1

REPORT INFORMATION
  Report Type: Spontaneous
  Country: US (occurrence: US)
  Receive Date: 20231110
  Receipt Date: 20240307
  Transmission Date: 20240409
  Serious: Yes (Hospitalization)
  Sender: FDA-Public Use
  Company Number: US-SAREPTA THERAPEUTICS INC.-SRP2023-003998

PATIENT
  Age: 20 Year
  Sex: Male
  Weight: 53.6 kg

DRUGS (12)
  1. VYONDYS 53 [Suspect]
     Active Substance: GOLODIRSEN
     Indication: Duchenne muscular dystrophy
     Dosage: 1700 MILLIGRAM, WEEKLY
     Route: 042
     Dates: start: 20210413, end: 20231026
  2. VYONDYS 53 [Suspect]
     Active Substance: GOLODIRSEN
     Dosage: 1700 MILLIGRAM, WEEKLY
     Route: 042
     Dates: start: 20231106
  3. CHOLECALCIFEROL [Concomitant]
     Active Substance: CHOLECALCIFEROL
     Indication: Supportive care
     Dosage: 0.5 TABLET (25 MG) DAILY
     Route: 048
     Dates: start: 20230710
  4. ALBUTEROL SULFATE [Concomitant]
     Active Substance: ALBUTEROL SULFATE
     Indication: Supportive care
     Dosage: 2 PUFFS TWICE DAILY
     Dates: start: 20180909
  5. ALBUTEROL SULFATE [Concomitant]
     Active Substance: ALBUTEROL SULFATE
     Dosage: 2 PUFFS TWICE DAILY
     Dates: start: 20230617
  6. COREG [Concomitant]
     Active Substance: CARVEDILOL
     Indication: Supportive care
     Dosage: 6.25 MILLIGRAM, 1 TABLET TWICE DAILY
     Route: 048
     Dates: start: 20230404
  7. SPIRONOLACTONE [Concomitant]
     Active Substance: SPIRONOLACTONE
     Indication: Supportive care
     Dosage: 25 MILLIGRAM, 1 TABLET BY MOUTH DAILY
     Route: 048
     Dates: start: 20230403, end: 20231113
  8. ERGOCALCIFEROL [Concomitant]
     Active Substance: ERGOCALCIFEROL
     Indication: Supportive care
     Dosage: 5000 UNITS, 1 CAPSULE BY EVERY MOUTH EVERY 7 DAYS FRO 6 WEEKS
     Route: 048
     Dates: start: 20230314
  9. LISINOPRIL [Concomitant]
     Active Substance: LISINOPRIL
     Indication: Supportive care
     Dosage: 10 MILLIGRAM, 1 TABLET BY MOUTH DAILY
     Route: 048
     Dates: start: 20221021, end: 20231113
  10. FLONASE [Concomitant]
     Active Substance: FLUTICASONE PROPIONATE
     Indication: Supportive care
     Dosage: 2 SPRAYS (50 MCG) IN EACH NOSTRIL TWICE DAILY
     Route: 045
     Dates: start: 20220311
  11. ALBUTEROL SULFATE [Concomitant]
     Active Substance: ALBUTEROL SULFATE
     Indication: Wheezing
     Dosage: 1 VIAL BY NEBULIZER EVERY 4 HOURS AS NEEDED
     Dates: start: 20170306
  12. ALBUTEROL SULFATE [Concomitant]
     Active Substance: ALBUTEROL SULFATE
     Indication: Cough

REACTIONS (5)
  - Pneumonia [Recovered/Resolved]
  - Acute respiratory failure [Recovered/Resolved]
  - Pneumonia aspiration [Recovered/Resolved]
  - Cardiogenic shock [Recovered/Resolved]
  - Sepsis [Unknown]

NARRATIVE: CASE EVENT DATE: 20231027
